FAERS Safety Report 5535728-3 (Version None)
Quarter: 2007Q4

REPORT INFORMATION
  Report Type: 
  Country: None (occurrence: None)
  Receive Date: 20071204
  Receipt Date: 20071204
  Transmission Date: 20080405
  Serious: Yes (Hospitalization)
  Sender: FDA-Public Use
  Company Number: None

PATIENT
  Sex: Male
  Weight: 77.25 kg

DRUGS (4)
  1. FLUOROURACIL [Suspect]
     Dosage: SEE IMAGE
  2. XELODA [Suspect]
     Dosage: 54000 MG
  3. CAMPTOSAR [Suspect]
     Dosage: 70 MG
  4. LEUCOVORIN CALCIUM [Suspect]
     Dosage: SEE IMAGE

REACTIONS (9)
  - ANAEMIA [None]
  - ENTEROCOCCAL INFECTION [None]
  - GASTROINTESTINAL TOXICITY [None]
  - HIATUS HERNIA [None]
  - OESOPHAGEAL DILATATION [None]
  - OESOPHAGEAL STENOSIS [None]
  - RENAL FAILURE [None]
  - SKIN TOXICITY [None]
  - URINARY RETENTION [None]
